FAERS Safety Report 18491603 (Version 2)
Quarter: 2020Q4

REPORT INFORMATION
  Report Type: Spontaneous
  Country: US (occurrence: US)
  Receive Date: 20201111
  Receipt Date: 20201221
  Transmission Date: 20210114
  Serious: Yes (Life-Threatening, Other)
  Sender: FDA-Public Use
  Company Number: US-ASTRAZENECA-2020SF48069

PATIENT
  Age: 78 Year
  Sex: Female

DRUGS (1)
  1. DURVALUMAB. [Suspect]
     Active Substance: DURVALUMAB
     Indication: LUNG ADENOCARCINOMA
     Route: 042

REACTIONS (2)
  - Acute respiratory failure [Unknown]
  - Drug-induced liver injury [Recovering/Resolving]
